FAERS Safety Report 10156264 (Version 2)
Quarter: 2014Q2

REPORT INFORMATION
  Report Type: Spontaneous
  Country: US (occurrence: US)
  Receive Date: 20140507
  Receipt Date: 20140617
  Transmission Date: 20141212
  Serious: Yes (Other)
  Sender: FDA-Public Use
  Company Number: US-009507513-1404USA015316

PATIENT
  Age: 21 Year
  Sex: Female
  Weight: 63.95 kg

DRUGS (1)
  1. NEXPLANON [Suspect]
     Dosage: 1 ROD; LEFT ARM
     Route: 059
     Dates: start: 20140314, end: 20140412

REACTIONS (1)
  - Implant site infection [Recovered/Resolved]
